FAERS Safety Report 13241563 (Version 1)
Quarter: 2017Q1

REPORT INFORMATION
  Report Type: Spontaneous
  Country: FR (occurrence: FR)
  Receive Date: 20170216
  Receipt Date: 20170216
  Transmission Date: 20170428
  Serious: Yes (Hospitalization, Other)
  Sender: FDA-Public Use
  Company Number: FR-ASTRAZENECA-2017SE15739

PATIENT
  Age: 369 Month
  Sex: Male

DRUGS (13)
  1. VALIUM [Concomitant]
     Active Substance: DIAZEPAM
     Indication: ABNORMAL BEHAVIOUR
     Dosage: 1 PERCENT ROCHE AT 135 DROPS PER DAY SINCE UNSPECIFIED DATE,
  2. THERALITHE SR [Concomitant]
     Indication: ABNORMAL BEHAVIOUR
     Dates: start: 20161026
  3. MECIR SR [Concomitant]
     Dates: start: 20161227
  4. TERCIAN [Suspect]
     Active Substance: CYAMEMAZINE
     Indication: ABNORMAL BEHAVIOUR
     Route: 048
     Dates: start: 20161220, end: 20161227
  5. THERALENE [Suspect]
     Active Substance: TRIMEPRAZINE
     Indication: ABNORMAL BEHAVIOUR
     Route: 048
     Dates: start: 20150910, end: 20161228
  6. TERCIAN [Suspect]
     Active Substance: CYAMEMAZINE
     Indication: ABNORMAL BEHAVIOUR
     Route: 048
     Dates: start: 20161212, end: 20161220
  7. DRIPTANE [Suspect]
     Active Substance: OXYBUTYNIN
     Route: 048
     Dates: start: 20161208, end: 20161226
  8. LEPTICUR [Suspect]
     Active Substance: TROPATEPINE HYDROCHLORIDE
     Indication: DRUG TOXICITY PROPHYLAXIS
     Route: 048
     Dates: start: 20161026
  9. TERCIAN [Suspect]
     Active Substance: CYAMEMAZINE
     Indication: ABNORMAL BEHAVIOUR
     Route: 048
     Dates: start: 20161227
  10. XEROQUEL [Suspect]
     Active Substance: QUETIAPINE FUMARATE
     Indication: ABNORMAL BEHAVIOUR
     Route: 048
     Dates: start: 20161031
  11. VALIUM [Concomitant]
     Active Substance: DIAZEPAM
     Indication: ABNORMAL BEHAVIOUR
     Dosage: 100 DROPS PER DAY
     Dates: start: 20161227
  12. THERALENE [Suspect]
     Active Substance: TRIMEPRAZINE
     Indication: ABNORMAL BEHAVIOUR
     Route: 048
     Dates: start: 20151228
  13. FLUOXETINE [Concomitant]
     Active Substance: FLUOXETINE HYDROCHLORIDE
     Indication: ABNORMAL BEHAVIOUR
     Dates: start: 20161030

REACTIONS (7)
  - Kidney enlargement [Unknown]
  - Cholelithiasis [Unknown]
  - Off label use [Unknown]
  - Klebsiella infection [Unknown]
  - Product use issue [Unknown]
  - Urinary retention [Recovered/Resolved]
  - Septic shock [Recovered/Resolved]

NARRATIVE: CASE EVENT DATE: 20161031
